FAERS Safety Report 9807752 (Version 1)
Quarter: 2014Q1

REPORT INFORMATION
  Report Type: Spontaneous
  Country: US (occurrence: US)
  Receive Date: 20140110
  Receipt Date: 20140110
  Transmission Date: 20141002
  Serious: No
  Sender: FDA-Public Use
  Company Number: US-BAYER-2014-004272

PATIENT
  Age: 72 Year
  Sex: Male
  Weight: 90.7 kg

DRUGS (3)
  1. ALEVE GELCAPS [Suspect]
     Indication: PAIN
     Dosage: 1 DF, PRN
     Route: 048
  2. BAYER CHEWABLE LOW DOSE BABY ASPIRIN TABLET ORANGE [Suspect]
     Indication: ANTICOAGULANT THERAPY
     Dosage: 1 DF, PRN
     Route: 048
  3. TRAMADOL [Concomitant]

REACTIONS (2)
  - Drug ineffective [None]
  - Off label use [None]
